FAERS Safety Report 8378544-X (Version None)
Quarter: 2012Q2

REPORT INFORMATION
  Report Type: 
  Country: None (occurrence: None)
  Receive Date: 20120522
  Receipt Date: 20120511
  Transmission Date: 20120825
  Serious: Yes (Other)
  Sender: FDA-Public Use
  Company Number: FR-FRI-1000030315

PATIENT
  Sex: Female

DRUGS (2)
  1. QUETIAPINE FUMARATE [Concomitant]
  2. ESCITALOPRAM [Suspect]
     Dosage: 20 MG

REACTIONS (2)
  - VENTRICULAR FIBRILLATION [None]
  - ATRIAL FIBRILLATION [None]
